FAERS Safety Report 13307440 (Version 1)
Quarter: 2017Q1

REPORT INFORMATION
  Report Type: Spontaneous
  Country: SE (occurrence: SE)
  Receive Date: 20170308
  Receipt Date: 20170308
  Transmission Date: 20170428
  Serious: Yes (Hospitalization)
  Sender: FDA-Public Use
  Company Number: SE-ASTRAZENECA-2017SE21837

PATIENT
  Age: 86 Year
  Sex: Female

DRUGS (2)
  1. ATACAND PLUS [Suspect]
     Active Substance: CANDESARTAN CILEXETIL\HYDROCHLOROTHIAZIDE
     Indication: HYPERTENSION
     Dosage: 16MG/ 12.5MG, ONE DAILY
     Route: 048
     Dates: end: 20170117
  2. WARAN [Concomitant]
     Active Substance: WARFARIN SODIUM

REACTIONS (1)
  - Inappropriate antidiuretic hormone secretion [Recovered/Resolved]

NARRATIVE: CASE EVENT DATE: 20170117
